FAERS Safety Report 24914380 (Version 1)
Quarter: 2025Q1

REPORT INFORMATION
  Report Type: Spontaneous
  Country: US (occurrence: US)
  Receive Date: 20250203
  Receipt Date: 20250203
  Transmission Date: 20250409
  Serious: No
  Sender: AUROBINDO
  Company Number: US-AUROBINDO-AUR-APL-2024-006378

PATIENT
  Age: 65 Year
  Sex: Female
  Weight: 58.9 kg

DRUGS (1)
  1. FAMOTIDINE [Suspect]
     Active Substance: FAMOTIDINE
     Indication: Gastrooesophageal reflux disease
     Route: 065
     Dates: start: 20240201

REACTIONS (2)
  - Nausea [Unknown]
  - Drug ineffective [Unknown]
